FAERS Safety Report 23305375 (Version 1)
Quarter: 2023Q4

REPORT INFORMATION
  Report Type: Spontaneous
  Country: US (occurrence: US)
  Receive Date: 20231218
  Receipt Date: 20231218
  Transmission Date: 20240109
  Serious: No
  Sender: FDA-Public Use
  Company Number: US-SA-SAC20231211001073

PATIENT
  Sex: Male

DRUGS (1)
  1. RIFAMPIN [Suspect]
     Active Substance: RIFAMPIN
     Indication: Mycobacterium avium complex infection
     Dosage: UNK (THREE TIMES PER WEEK FOR ABOUT A MONTH)
     Route: 065

REACTIONS (6)
  - Skin lesion [Unknown]
  - Condition aggravated [Unknown]
  - Disease progression [Unknown]
  - Haemangioma of skin [Unknown]
  - Chromaturia [Unknown]
  - Nausea [Unknown]
